FAERS Safety Report 20994086 (Version 2)
Quarter: 2022Q3

REPORT INFORMATION
  Report Type: Spontaneous
  Country: DE (occurrence: DE)
  Receive Date: 20220622
  Receipt Date: 20220809
  Transmission Date: 20221027
  Serious: Yes (Hospitalization, Other)
  Sender: FDA-Public Use
  Company Number: DE-LESVI-2022002532

PATIENT
  Age: 53 Year
  Sex: Female

DRUGS (4)
  1. LORAZEPAM [Suspect]
     Active Substance: LORAZEPAM
     Indication: Anxiolytic therapy
     Dosage: 1 MILLIGRAM, QD, REDUCED IN STEPS OF 0.5 MG UP TO A DAILY DOSE OF 1 MG
     Route: 065
  2. LORAZEPAM [Suspect]
     Active Substance: LORAZEPAM
     Dosage: 0.25 MILLIGRAM, QD, 0.25 MG STEPS OVER SEVERAL DAYS
     Route: 065
  3. LORAZEPAM [Suspect]
     Active Substance: LORAZEPAM
     Dosage: 1 MILLIGRAM, QD, DAILY DOSE OF 1 MG, THE SYMPTOMS RAPIDLY SUBSIDED
     Route: 065
  4. LORAZEPAM [Suspect]
     Active Substance: LORAZEPAM
     Dosage: 2 MILLIGRAM, QD, DAILY DOSE OF 2 MG BEFORE ADMISSION
     Route: 065

REACTIONS (4)
  - Performance status decreased [Unknown]
  - Drug tolerance [Unknown]
  - Cognitive disorder [Unknown]
  - Delirium [Recovered/Resolved]
